FAERS Safety Report 9876829 (Version 2)
Quarter: 2014Q1

REPORT INFORMATION
  Report Type: Other
  Country: US (occurrence: US)
  Receive Date: 20140206
  Receipt Date: 20140206
  Transmission Date: 20141002
  Serious: No
  Sender: FDA-Public Use
  Company Number: US-ACORDA-ACO_37788_2013

PATIENT
  Age: 49 Year
  Sex: Male

DRUGS (3)
  1. AMPYRA [Suspect]
     Indication: GAIT DISTURBANCE
     Dosage: 10 MG, BID
     Route: 065
     Dates: start: 20130708, end: 201307
  2. AMPYRA [Suspect]
     Dosage: 10 MG, QD
     Route: 065
     Dates: start: 201307, end: 20130728
  3. TECFIDERA [Concomitant]
     Indication: MULTIPLE SCLEROSIS
     Dosage: 240 MG, BID
     Route: 048

REACTIONS (3)
  - Anxiety [Recovered/Resolved]
  - Vertigo [Recovered/Resolved]
  - Inappropriate schedule of drug administration [None]
